FAERS Safety Report 9116414 (Version 1)
Quarter: 2013Q1

REPORT INFORMATION
  Report Type: Spontaneous
  Country: US (occurrence: US)
  Receive Date: 20130225
  Receipt Date: 20130225
  Transmission Date: 20140127
  Serious: Yes (Other)
  Sender: FDA-Public Use
  Company Number: US-PFIZER INC-2013064751

PATIENT
  Age: 67 Year
  Sex: Female
  Weight: 63.49 kg

DRUGS (2)
  1. REVATIO [Suspect]
     Indication: PULMONARY HYPERTENSION
     Dosage: 20 MG, 2X/DAY
     Route: 048
  2. REVATIO [Suspect]
     Dosage: 40 MG, 3X/DAY
     Route: 048

REACTIONS (3)
  - Off label use [Unknown]
  - Haemorrhage [Unknown]
  - Epistaxis [Unknown]
